FAERS Safety Report 5716414-3 (Version None)
Quarter: 2008Q2

REPORT INFORMATION
  Report Type: 
  Country: None (occurrence: None)
  Receive Date: 20080422
  Receipt Date: 20080407
  Transmission Date: 20081010
  Serious: Yes (Other)
  Sender: FDA-Public Use
  Company Number: 100#03#2008-01948

PATIENT
  Age: 56 Year
  Sex: Male

DRUGS (4)
  1. CITALOPRAM HYDROBROMIDE [Suspect]
     Indication: DEPRESSION
     Dosage: 10 MG
     Route: 048
     Dates: start: 20051205
  2. ATIVAN [Concomitant]
  3. NICORETTE (NICOTINE, PIPERAZINE) [Concomitant]
  4. ACETAMINOPHEN [Concomitant]

REACTIONS (10)
  - ABNORMAL BEHAVIOUR [None]
  - AGGRESSION [None]
  - AGITATION [None]
  - ALCOHOL INTERACTION [None]
  - CONFUSIONAL STATE [None]
  - DEREALISATION [None]
  - IMPRISONMENT [None]
  - MEMORY IMPAIRMENT [None]
  - PANIC REACTION [None]
  - PARANOIA [None]
